FAERS Safety Report 5270232-1 (Version None)
Quarter: 2007Q1

REPORT INFORMATION
  Report Type: 
  Country: None (occurrence: None)
  Receive Date: 20070320
  Receipt Date: 20070315
  Transmission Date: 20070707
  Serious: Yes (Other)
  Sender: FDA-Public Use
  Company Number: HQWYE276427OCT05

PATIENT
  Sex: Female
  Weight: 81 kg

DRUGS (4)
  1. GEMTUZUMAB OZOGAMICIN [Suspect]
     Indication: ACUTE MYELOID LEUKAEMIA
     Route: 065
     Dates: start: 20051004, end: 20051004
  2. GEMTUZUMAB OZOGAMICIN [Suspect]
     Route: 065
     Dates: start: 20051018, end: 20051018
  3. FLUCONAZOLE [Concomitant]
     Dosage: NOT PROVIDED
     Route: 065
     Dates: start: 20051003
  4. ACYCLOVIR [Concomitant]
     Dosage: NOT PROVIDED
     Route: 065
     Dates: start: 20051003

REACTIONS (5)
  - BRADYCARDIA [None]
  - HYPERSENSITIVITY [None]
  - HYPOTENSION [None]
  - HYPOXIA [None]
  - SOMNOLENCE [None]
